FAERS Safety Report 8384420-9 (Version None)
Quarter: 2012Q2

REPORT INFORMATION
  Report Type: 
  Country: None (occurrence: None)
  Receive Date: 20120524
  Receipt Date: 20120517
  Transmission Date: 20120825
  Serious: Yes (Death, Hospitalization)
  Sender: FDA-Public Use
  Company Number: US-GLAXOSMITHKLINE-A0940142A

PATIENT
  Age: 72 Year
  Sex: Male
  Weight: 95.9 kg

DRUGS (2)
  1. AVANDIA [Suspect]
     Indication: DIABETES MELLITUS
     Route: 048
     Dates: start: 19990601, end: 20060812
  2. AVANDAMET [Suspect]
     Indication: DIABETES MELLITUS
     Route: 048
     Dates: start: 20060812, end: 20090901

REACTIONS (2)
  - CARDIAC FAILURE CONGESTIVE [None]
  - DEATH [None]
